FAERS Safety Report 16678095 (Version 1)
Quarter: 2019Q3

REPORT INFORMATION
  Report Type: Spontaneous
  Country: US (occurrence: US)
  Receive Date: 20190806
  Receipt Date: 20190806
  Transmission Date: 20191004
  Serious: No
  Sender: FDA-Public Use
  Company Number: None

PATIENT
  Age: 10 Year
  Sex: Male
  Weight: 110.25 kg

DRUGS (1)
  1. OXCARBAZEPINE. [Suspect]
     Active Substance: OXCARBAZEPINE
     Indication: EMOTIONAL DISORDER
     Dosage: ?          QUANTITY:2 TABLET(S);?          THERAPY ONGOING: Y
     Route: 048
     Dates: start: 20160801, end: 20190701

REACTIONS (1)
  - Weight increased [None]

NARRATIVE: CASE EVENT DATE: 20161001
